FAERS Safety Report 5193258-5 (Version None)
Quarter: 2006Q4

REPORT INFORMATION
  Report Type: 
  Country: None (occurrence: None)
  Receive Date: 20061228
  Receipt Date: 20060807
  Transmission Date: 20070319
  Serious: No
  Sender: FDA-Public Use
  Company Number: US-GLAXOSMITHKLINE-A0615596A

PATIENT
  Age: 76 Year
  Sex: Male

DRUGS (6)
  1. AVODART [Suspect]
     Dosage: .5MG PER DAY
     Route: 048
  2. SINEMET [Concomitant]
  3. COMTAN [Concomitant]
  4. SPIRONOLACTONE [Concomitant]
  5. CENTRUM SILVER [Concomitant]
  6. UROXATRAL [Concomitant]

REACTIONS (3)
  - DYSPHAGIA [None]
  - DYSPHONIA [None]
  - MUSCLE DISORDER [None]
